FAERS Safety Report 15824751 (Version 1)
Quarter: 2019Q1

REPORT INFORMATION
  Report Type: Spontaneous
  Country: US (occurrence: US)
  Receive Date: 20190115
  Receipt Date: 20190115
  Transmission Date: 20190417
  Serious: Yes (Hospitalization)
  Sender: FDA-Public Use
  Company Number: US-DSJP-DSU-2017-139121

PATIENT

DRUGS (1)
  1. BENICAR [Suspect]
     Active Substance: OLMESARTAN MEDOXOMIL
     Indication: HYPERTENSION
     Dosage: 20 MG, QD
     Route: 048
     Dates: start: 20130101, end: 20170815

REACTIONS (4)
  - Constipation [Unknown]
  - Sprue-like enteropathy [Recovering/Resolving]
  - Helicobacter infection [Unknown]
  - Gastritis erosive [Unknown]

NARRATIVE: CASE EVENT DATE: 20131017
